FAERS Safety Report 4921539-6 (Version None)
Quarter: 2006Q1

REPORT INFORMATION
  Report Type: 
  Country: None (occurrence: None)
  Receive Date: 20060224
  Receipt Date: 20060220
  Transmission Date: 20060701
  Serious: Yes (Life-Threatening, Hospitalization)
  Sender: FDA-Public Use
  Company Number: PHRM2006FR00828

PATIENT
  Age: 50 Year
  Sex: Male

DRUGS (1)
  1. GLEEVEC [Suspect]
     Indication: GASTROINTESTINAL STROMAL TUMOUR
     Dosage: 400 MG DAILY
     Route: 048
     Dates: start: 20050801

REACTIONS (7)
  - ABDOMINAL PAIN [None]
  - ANAEMIA [None]
  - HEPATIC EMBOLISATION [None]
  - HEPATIC HAEMATOMA [None]
  - NAUSEA [None]
  - SHOCK HAEMORRHAGIC [None]
  - VOMITING [None]
